FAERS Safety Report 9503374 (Version 4)
Quarter: 2014Q3

REPORT INFORMATION
  Report Type: Spontaneous
  Country: US (occurrence: US)
  Receive Date: 20130906
  Receipt Date: 20140811
  Transmission Date: 20150326
  Serious: Yes (Hospitalization, Other)
  Sender: FDA-Public Use
  Company Number: US-BAYER-2013-104284

PATIENT
  Age: 17 Year
  Sex: Female
  Weight: 52 kg

DRUGS (3)
  1. LORTAB [Concomitant]
     Active Substance: ACETAMINOPHEN\HYDROCODONE BITARTRATE
     Dosage: 5/500
  2. PROMETHAZINE [Concomitant]
     Active Substance: PROMETHAZINE\PROMETHAZINE HYDROCHLORIDE
     Dosage: 25 MG, UNK
  3. MIRENA [Suspect]
     Active Substance: LEVONORGESTREL
     Indication: CONTRACEPTION
     Dosage: 20 MCG/24HR, CONT
     Route: 015
     Dates: start: 20110425, end: 20120118

REACTIONS (16)
  - Device dislocation [None]
  - Medical device pain [None]
  - Infection [None]
  - Infertility female [None]
  - Device issue [None]
  - Gastrointestinal injury [None]
  - Pulmonary oedema [None]
  - Shock haemorrhagic [None]
  - Uterine perforation [None]
  - Injury [None]
  - Emotional distress [None]
  - Pelvic pain [None]
  - Procedural haemorrhage [None]
  - Pelvic adhesions [None]
  - Anaemia [None]
  - Disseminated intravascular coagulation [None]

NARRATIVE: CASE EVENT DATE: 201111
